FAERS Safety Report 4511385-X (Version None)
Quarter: 2004Q4

REPORT INFORMATION
  Report Type: 
  Country: None (occurrence: None)
  Receive Date: 20041123
  Receipt Date: 20041123
  Transmission Date: 20050328
  Serious: Yes (Life-Threatening, Hospitalization)
  Sender: FDA-Public Use
  Company Number: None

PATIENT
  Age: 27 Year
  Sex: Male
  Weight: 65.7716 kg

DRUGS (1)
  1. RELENZA [Suspect]
     Indication: VIRAL INFECTION
     Dosage: 1 BREATH  RESPIRATORY
     Route: 055
     Dates: start: 20000207, end: 20000214

REACTIONS (1)
  - DIABETES MELLITUS [None]
